FAERS Safety Report 18173052 (Version 1)
Quarter: 2020Q3

REPORT INFORMATION
  Report Type: Spontaneous
  Country: CH (occurrence: CH)
  Receive Date: 20200819
  Receipt Date: 20200819
  Transmission Date: 20201103
  Serious: Yes (Hospitalization)
  Sender: FDA-Public Use
  Company Number: CH-ASCEND THERAPEUTICS US, LLC-2088818

PATIENT
  Age: 59 Year
  Sex: Female

DRUGS (3)
  1. ESTROGEL [Suspect]
     Active Substance: ESTRADIOL
     Indication: MENOPAUSAL SYMPTOMS
     Route: 062
     Dates: start: 2014, end: 20200717
  2. OESTROGEL (ESTRADIOL) (GEL), UNKNOWN?INDICATION FOR USE: MENOPAUSAL SY [Suspect]
     Active Substance: ESTRADIOL
     Route: 062
     Dates: start: 2014, end: 20200717
  3. ESTROGEL [Suspect]
     Active Substance: ESTRADIOL

REACTIONS (3)
  - Peripheral artery thrombosis [Recovered/Resolved]
  - Off label use [Recovered/Resolved]
  - Ischaemic stroke [Recovered/Resolved]
